FAERS Safety Report 5743093-1 (Version None)
Quarter: 2008Q2

REPORT INFORMATION
  Report Type: 
  Country: None (occurrence: None)
  Receive Date: 20080519
  Receipt Date: 20080505
  Transmission Date: 20081010
  Serious: Yes (Other)
  Sender: FDA-Public Use
  Company Number: US-ELI_LILLY_AND_COMPANY-US200805000598

PATIENT
  Age: 18 Year
  Sex: Male

DRUGS (1)
  1. STRATTERA [Suspect]
     Indication: ATTENTION DEFICIT/HYPERACTIVITY DISORDER
     Dosage: 80 MG, DAILY (1/D)
     Dates: start: 20060101, end: 20080101

REACTIONS (9)
  - APHASIA [None]
  - BLOOD PRESSURE DECREASED [None]
  - BLOOD PRESSURE INCREASED [None]
  - CHEST DISCOMFORT [None]
  - COUGH [None]
  - DRUG INTERACTION [None]
  - HEART RATE DECREASED [None]
  - INFLUENZA [None]
  - SENSORY DISTURBANCE [None]
